APPROVED DRUG PRODUCT: CHILDREN'S FEXOFENADINE HYDROCHLORIDE ALLERGY
Active Ingredient: FEXOFENADINE HYDROCHLORIDE
Strength: 30MG/5ML
Dosage Form/Route: SUSPENSION;ORAL
Application: A203330 | Product #001
Applicant: P AND L DEVELOPMENT LLC
Approved: Nov 18, 2014 | RLD: No | RS: No | Type: OTC